FAERS Safety Report 17123903 (Version 4)
Quarter: 2020Q3

REPORT INFORMATION
  Report Type: Spontaneous
  Country: US (occurrence: US)
  Receive Date: 20191206
  Receipt Date: 20200709
  Transmission Date: 20201102
  Serious: Yes (Hospitalization, Congenital Anomaly)
  Sender: FDA-Public Use
  Company Number: US-PFIZER INC-2019526666

PATIENT
  Age: 35 Week
  Sex: Male
  Weight: 1.92 kg

DRUGS (3)
  1. GABAPENTIN. [Suspect]
     Active Substance: GABAPENTIN
     Dosage: UNK
     Route: 064
  2. HEROIN [Suspect]
     Active Substance: DIAMORPHINE
     Dosage: UNK
     Route: 064
  3. BUPRENORPHINE. [Suspect]
     Active Substance: BUPRENORPHINE
     Dosage: UNK
     Route: 064

REACTIONS (11)
  - Hypoxic-ischaemic encephalopathy [Unknown]
  - Neonatal respiratory distress [Unknown]
  - Drug withdrawal syndrome neonatal [Unknown]
  - Maternal exposure during pregnancy [Unknown]
  - Congenital multiplex arthrogryposis [Unknown]
  - Hypotonia neonatal [Unknown]
  - Nervous system disorder [Unknown]
  - Hydronephrosis [Unknown]
  - Premature baby [Unknown]
  - Gastrooesophageal reflux disease [Unknown]
  - Low birth weight baby [Unknown]
